FAERS Safety Report 24426117 (Version 2)
Quarter: 2024Q4

REPORT INFORMATION
  Report Type: Other
  Country: US (occurrence: US)
  Receive Date: 20241011
  Receipt Date: 20241023
  Transmission Date: 20250114
  Serious: Yes (Hospitalization)
  Sender: ALVOGEN
  Company Number: US-ALVOGEN-2024095608

PATIENT
  Age: 61 Year
  Sex: Female

DRUGS (2)
  1. SERTRALINE [Suspect]
     Active Substance: SERTRALINE HYDROCHLORIDE
     Indication: Product used for unknown indication
  2. SERTRALINE [Suspect]
     Active Substance: SERTRALINE HYDROCHLORIDE
     Indication: Product used for unknown indication
     Dosage: INCREASE OF SERTRALINE DOSAGE TO 100 MG/DAY

REACTIONS (2)
  - Multiple acyl-coenzyme A dehydrogenase deficiency [Recovered/Resolved]
  - Rhabdomyolysis [Recovered/Resolved]
